FAERS Safety Report 4656686-X (Version None)
Quarter: 2005Q2

REPORT INFORMATION
  Report Type: 
  Country: None (occurrence: None)
  Receive Date: 20050506
  Receipt Date: 20050420
  Transmission Date: 20051028
  Serious: Yes (Death)
  Sender: FDA-Public Use
  Company Number: S05-NOR-01249-01

PATIENT
  Age: 50 Year
  Sex: Female

DRUGS (2)
  1. CIPRALEX (ESCITALOPRAM) [Suspect]
     Indication: DEPRESSION
     Dosage: 10 MG QD PO
     Route: 048
     Dates: start: 20050106, end: 20050115
  2. CIPRALEX (ESCITALOPRAM) [Suspect]
     Indication: DEPRESSION
     Dosage: 20 MG QD PO
     Route: 048
     Dates: start: 20050115, end: 20050126

REACTIONS (2)
  - COMPLETED SUICIDE [None]
  - INJURY ASPHYXIATION [None]
